FAERS Safety Report 7661399-6 (Version None)
Quarter: 2011Q3

REPORT INFORMATION
  Report Type: 
  Country: None (occurrence: None)
  Receive Date: 20110805
  Receipt Date: 20100927
  Transmission Date: 20111222
  Serious: No
  Sender: FDA-Public Use
  Company Number: US-ABBOTT-10P-163-0674006-00

PATIENT
  Sex: Male
  Weight: 83.99 kg

DRUGS (4)
  1. NIASPAN [Suspect]
  2. CRESTOR [Concomitant]
     Indication: BLOOD CHOLESTEROL
  3. NORVASC [Concomitant]
     Indication: BLOOD PRESSURE
  4. NIASPAN [Suspect]
     Indication: BLOOD TRIGLYCERIDES INCREASED
     Dosage: 1/2 A TABLET EVERY OTHER DAY.  NO TIME FRAME AVAILABLE.

REACTIONS (3)
  - PALPITATIONS [None]
  - HEART RATE INCREASED [None]
  - ASTHENIA [None]
